FAERS Safety Report 6096478-0 (Version None)
Quarter: 2009Q1

REPORT INFORMATION
  Report Type: 
  Country: None (occurrence: None)
  Receive Date: 20090227
  Receipt Date: 20081023
  Transmission Date: 20090719
  Serious: No
  Sender: FDA-Public Use
  Company Number: A0753292C

PATIENT
  Sex: Male

DRUGS (4)
  1. DARAPRIM [Suspect]
     Indication: TOXOPLASMOSIS
     Dates: start: 20060501
  2. ZANTAC [Concomitant]
  3. SULFADIAZINE [Concomitant]
  4. FOLIC ACID [Concomitant]

REACTIONS (2)
  - DRUG EXPOSURE DURING PREGNANCY [None]
  - TOXOPLASMOSIS [None]
